FAERS Safety Report 14708834 (Version 2)
Quarter: 2018Q2

REPORT INFORMATION
  Report Type: Spontaneous
  Country: JP (occurrence: JP)
  Receive Date: 20180403
  Receipt Date: 20180413
  Transmission Date: 20180711
  Serious: Yes (Death, Other)
  Sender: FDA-Public Use
  Company Number: PHJP2018JP007490

PATIENT
  Age: 82 Year
  Sex: Female

DRUGS (2)
  1. MEROPENEM. [Suspect]
     Active Substance: MEROPENEM
     Indication: SEPSIS
     Dosage: 1 G, QD
     Route: 065
     Dates: start: 20180327, end: 20180328
  2. VOLTAREN SUP [Suspect]
     Active Substance: DICLOFENAC SODIUM
     Indication: PYREXIA
     Dosage: 12.5 MG, ONCE/SINGLE
     Route: 054
     Dates: start: 20180326, end: 20180326

REACTIONS (6)
  - C-reactive protein increased [Fatal]
  - Renal failure [Unknown]
  - Circulatory collapse [Fatal]
  - Sepsis [Fatal]
  - Shock [Fatal]
  - Blood pressure decreased [Fatal]

NARRATIVE: CASE EVENT DATE: 20180328
